FAERS Safety Report 7916820-2 (Version None)
Quarter: 2011Q4

REPORT INFORMATION
  Report Type: 
  Country: None (occurrence: None)
  Receive Date: 20111114
  Receipt Date: 20111102
  Transmission Date: 20120403
  Serious: Yes (Hospitalization)
  Sender: FDA-Public Use
  Company Number: TPA2011A06672

PATIENT
  Age: 66 Year
  Sex: Male

DRUGS (11)
  1. ADENURIC (FEBUXOSTAT) [Suspect]
     Indication: ARTHRALGIA
     Dosage: ORAL
     Route: 048
     Dates: start: 20110511
  2. KETOPROFEN [Suspect]
     Indication: ARTHRALGIA
     Dosage: ORAL
     Route: 048
     Dates: start: 20110509
  3. LANTUS [Concomitant]
  4. APROVEL (IRBESARTAN) [Concomitant]
  5. ATENOLOL [Concomitant]
  6. FUROSEMIDE [Concomitant]
  7. AMLODIPINE [Concomitant]
  8. PLAVIX [Concomitant]
  9. ATORVASTATIN CALCIUM [Concomitant]
  10. NOVOLOG [Concomitant]
  11. ALPRESS (PRAZOSIN HYDRCHLORIDE) [Concomitant]

REACTIONS (6)
  - GENITAL PAIN [None]
  - LYMPHOPENIA [None]
  - EOSINOPHILIA [None]
  - TOXIC EPIDERMAL NECROLYSIS [None]
  - ODYNOPHAGIA [None]
  - RENAL FAILURE ACUTE [None]
